FAERS Safety Report 15711772 (Version 1)
Quarter: 2018Q4

REPORT INFORMATION
  Report Type: Report from Study
  Country: US (occurrence: US)
  Receive Date: 20181212
  Receipt Date: 20181212
  Transmission Date: 20190205
  Serious: Yes (Hospitalization)
  Sender: FDA-Public Use
  Company Number: US-ROCHE-2225855

PATIENT
  Age: 59 Year
  Sex: Female
  Weight: 69.3 kg

DRUGS (3)
  1. PEMETREXED. [Suspect]
     Active Substance: PEMETREXED
     Indication: NON-SMALL CELL LUNG CANCER
     Dosage: 500 MG/M^2 ON DAY 1 OF A 21 DAY CYCLE FOR 4-6 CYCLES.
     Route: 042
     Dates: start: 20181112
  2. PIRFENIDONE. [Suspect]
     Active Substance: PIRFENIDONE
     Indication: NON-SMALL CELL LUNG CANCER
     Dosage: ONE CAPSULE (TOTAL DAILY DOSE 801 MG); LEVEL 2: TWO CAPSULES (TOTAL DAILY DOSE 1602 MG); LEVEL 3: TH
     Route: 048
     Dates: start: 20181112
  3. CARBOPLATIN. [Suspect]
     Active Substance: CARBOPLATIN
     Indication: NON-SMALL CELL LUNG CANCER
     Dosage: AREA UNDER THE CURVE (AUC) 6 ON DAY 1 OF A 21 DAY CYCLE FOR 4-6 CYCLES.
     Route: 042
     Dates: start: 20181112

REACTIONS (1)
  - Dyspnoea [Unknown]

NARRATIVE: CASE EVENT DATE: 20181202
